FAERS Safety Report 6671500-9 (Version None)
Quarter: 2010Q2

REPORT INFORMATION
  Report Type: 
  Country: None (occurrence: None)
  Receive Date: 20100407
  Receipt Date: 20100402
  Transmission Date: 20101027
  Serious: Yes (Hospitalization, Disabling)
  Sender: FDA-Public Use
  Company Number: US-MERCK-1004USA00315

PATIENT
  Age: 74 Year
  Sex: Female

DRUGS (1)
  1. FOSAMAX PLUS D [Suspect]
     Indication: OSTEOPETROSIS
     Route: 048
     Dates: start: 20070101

REACTIONS (1)
  - FEMUR FRACTURE [None]
